FAERS Safety Report 6400646-5 (Version None)
Quarter: 2009Q4

REPORT INFORMATION
  Report Type: 
  Country: None (occurrence: None)
  Receive Date: 20091014
  Receipt Date: 20091009
  Transmission Date: 20100525
  Serious: Yes (Death, Other)
  Sender: FDA-Public Use
  Company Number: PHHY2009JP42324

PATIENT
  Age: 29 Year
  Sex: Male

DRUGS (7)
  1. CYCLOSPORINE [Suspect]
     Indication: CORD BLOOD TRANSPLANT THERAPY
  2. METHYLPREDNISOLONE [Suspect]
     Indication: CORD BLOOD TRANSPLANT THERAPY
  3. MYCOPHENOLATE MOFETIL [Suspect]
     Indication: CORD BLOOD TRANSPLANT THERAPY
  4. ARA-C [Concomitant]
  5. CYCLOPHOSPHAMIDE [Concomitant]
  6. RADIO-THERAPY [Concomitant]
     Dosage: 12 GY, UNK
  7. METHOTREXATE [Concomitant]

REACTIONS (13)
  - BONE MARROW FAILURE [None]
  - CHOLESTASIS [None]
  - CHRONIC GRAFT VERSUS HOST DISEASE [None]
  - DIFFUSE ALVEOLAR DAMAGE [None]
  - INFECTION [None]
  - JAUNDICE [None]
  - LIVER DISORDER [None]
  - MULTI-ORGAN FAILURE [None]
  - PULMONARY CONGESTION [None]
  - RASH [None]
  - SKIN ATROPHY [None]
  - THROMBOTIC MICROANGIOPATHY [None]
  - ULCER HAEMORRHAGE [None]
